FAERS Safety Report 5897905-1 (Version None)
Quarter: 2008Q3

REPORT INFORMATION
  Report Type: 
  Country: None (occurrence: None)
  Receive Date: 20080925
  Receipt Date: 20080909
  Transmission Date: 20090109
  Serious: Yes (Other)
  Sender: FDA-Public Use
  Company Number: NL-BAYER-200824500GPV

PATIENT
  Age: 30 Year
  Sex: Female

DRUGS (3)
  1. YAZ [Suspect]
     Route: 048
     Dates: start: 20060708, end: 20080704
  2. RIGEVIDON [Concomitant]
     Indication: CONTRACEPTION
     Route: 048
     Dates: start: 20080705
  3. MICROMYCIN [Concomitant]

REACTIONS (1)
  - BLADDER CANCER [None]
